FAERS Safety Report 20310126 (Version 1)
Quarter: 2022Q1

REPORT INFORMATION
  Report Type: Spontaneous
  Country: US (occurrence: None)
  Receive Date: 20220107
  Receipt Date: 20220107
  Transmission Date: 20220423
  Serious: Yes (Other)
  Sender: FDA-Public Use
  Company Number: None

PATIENT
  Age: 73 Year
  Sex: Female
  Weight: 83.46 kg

DRUGS (17)
  1. EVEROLIMUS [Suspect]
     Active Substance: EVEROLIMUS
     Indication: Breast cancer
     Dosage: FREQUENCY : DAILY;?
     Route: 048
     Dates: start: 20210710
  2. ATENOLOL [Concomitant]
     Active Substance: ATENOLOL
  3. BYSTOLIC [Concomitant]
  4. CALCIUM/VIT D [Concomitant]
  5. CLONIDINE [Concomitant]
  6. FAMOTIDINE [Concomitant]
  7. FUROSEMIDE [Concomitant]
  8. HYDRALAZINE [Concomitant]
  9. KISQALI [Concomitant]
  10. LISINOPRIL [Concomitant]
     Active Substance: LISINOPRIL
  11. LORATADINE [Concomitant]
  12. MECLIZINE [Concomitant]
  13. MONTELUKAST [Concomitant]
  14. OXYCODONE-APAP [Concomitant]
  15. PANTOPRAZOLE [Concomitant]
  16. PROCHLORPERAZINE [Concomitant]
  17. XGEVA [Concomitant]

REACTIONS (3)
  - Gastric cancer [None]
  - Oesophageal carcinoma [None]
  - Lung disorder [None]
